FAERS Safety Report 4985811-6 (Version None)
Quarter: 2006Q2

REPORT INFORMATION
  Report Type: 
  Country: None (occurrence: None)
  Receive Date: 20060421
  Receipt Date: 20060411
  Transmission Date: 20061013
  Serious: Yes (Hospitalization)
  Sender: FDA-Public Use
  Company Number: 2006045332

PATIENT
  Age: 35 Year
  Sex: Male

DRUGS (5)
  1. SULPERAZON (SULBACTAM, CEFOPERAZONE) [Suspect]
     Indication: CHOLANGITIS
     Dosage: 1 GRAM (1 GRAM, QD) INTRAVENOUS
     Route: 042
     Dates: start: 20020531, end: 20060319
  2. ZANTAC [Suspect]
     Indication: GASTRITIS
     Dosage: 100 MG (10 MG, QD), INTRAVENOUS
     Route: 042
     Dates: start: 20060319, end: 20060319
  3. STRONG NEO-MINOPHAGEN C (AMINOACETIC ACID, CYSTEINE, GLYCYRRHIZIC ACID [Suspect]
     Indication: LIVER DISORDER
     Dosage: 40 ML (40 ML, QD) INTRAVENOUS
     Route: 042
     Dates: start: 20060319, end: 20060319
  4. VITAMEDIN INTRAVENOUS (CYANOCOBALAMIN, PYRIDOXINE HYDROCHLORIDE, THIAM [Suspect]
     Indication: HYPOVITAMINOSIS
     Dosage: 1 VIAL , QD, INTRAVENOUS
     Route: 042
     Dates: start: 20060319, end: 20060319
  5. VEEN D (CALCIUM CHLORIDE DIHYDRATE, GLUCOSE, POTASSIUM CHLORIDE, SODIU [Suspect]
     Indication: CHOLANGITIS
     Dosage: 500 ML (500 ML, QD), INTRAVENOUS
     Route: 042
     Dates: start: 20060319, end: 20060319

REACTIONS (4)
  - ANAPHYLACTIC SHOCK [None]
  - DYSPHORIA [None]
  - HYPOAESTHESIA ORAL [None]
  - LOSS OF CONSCIOUSNESS [None]
